FAERS Safety Report 9407732 (Version 1)
Quarter: 2013Q3

REPORT INFORMATION
  Report Type: Spontaneous
  Country: US (occurrence: US)
  Receive Date: 20130718
  Receipt Date: 20130718
  Transmission Date: 20140515
  Serious: Yes (Other)
  Sender: FDA-Public Use
  Company Number: US-ELI_LILLY_AND_COMPANY-US201305002369

PATIENT
  Age: 35 Year
  Sex: Male
  Weight: 123.81 kg

DRUGS (2)
  1. CYMBALTA [Suspect]
     Indication: DEPRESSION
     Dosage: 30 MG, QD
     Route: 048
     Dates: start: 20130429, end: 20130501
  2. CYMBALTA [Suspect]
     Indication: ANXIETY

REACTIONS (6)
  - Seizure like phenomena [Recovered/Resolved]
  - Syncope [Recovered/Resolved]
  - Tongue biting [Recovered/Resolved]
  - Urinary incontinence [Recovered/Resolved]
  - Nausea [Recovered/Resolved]
  - Feeling abnormal [Recovered/Resolved]
